FAERS Safety Report 7376386-5 (Version None)
Quarter: 2011Q1

REPORT INFORMATION
  Report Type: 
  Country: None (occurrence: None)
  Receive Date: 20110325
  Receipt Date: 20110224
  Transmission Date: 20110831
  Serious: Yes (Hospitalization)
  Sender: FDA-Public Use
  Company Number: US-BAYER-201041542NA

PATIENT
  Sex: Female
  Weight: 73 kg

DRUGS (10)
  1. ORTHO TRI-CYCLEN [Concomitant]
  2. HYDROCHLOROTHIAZIDE [Concomitant]
  3. BUDEPRION [Concomitant]
     Indication: PRODUCT USED FOR UNKNOWN INDICATION
     Dosage: 150-300 MG, 8 YEARS
  4. WELLBUTRIN [Concomitant]
     Indication: PRODUCT USED FOR UNKNOWN INDICATION
     Dosage: 150-300 MG ^8 YEARS^
     Route: 048
  5. VOLTAREN [Concomitant]
     Dosage: 75 MG, BID
     Route: 048
     Dates: start: 20080804
  6. YAZ [Suspect]
     Indication: ACNE
     Dosage: UNK
     Dates: start: 20020101, end: 20090101
  7. YAZ [Suspect]
     Indication: MENOPAUSE
  8. TRINESSA [Concomitant]
  9. DEPO-PROVERA [Concomitant]
  10. FLEXERIL [Concomitant]
     Dosage: 10 MG, TID
     Route: 048
     Dates: start: 20080507

REACTIONS (4)
  - INJURY [None]
  - CHOLELITHIASIS [None]
  - CHOLECYSTITIS [None]
  - ABDOMINAL ADHESIONS [None]
